FAERS Safety Report 13229319 (Version 2)
Quarter: 2017Q1

REPORT INFORMATION
  Report Type: Report from Study
  Country: None (occurrence: US)
  Receive Date: 20170214
  Receipt Date: 20170304
  Transmission Date: 20170428
  Serious: Yes (Other)
  Sender: FDA-Public Use
  Company Number: US-ABBVIE-17K-163-1863638-00

PATIENT
  Sex: Female

DRUGS (3)
  1. HUMIRA [Suspect]
     Active Substance: ADALIMUMAB
     Route: 058
     Dates: start: 201702
  2. HUMIRA [Suspect]
     Active Substance: ADALIMUMAB
     Indication: COLITIS ULCERATIVE
     Dosage: DAY 1
     Route: 058
     Dates: start: 20170111, end: 20170111
  3. HUMIRA [Suspect]
     Active Substance: ADALIMUMAB
     Dosage: DAY 15
     Route: 058
     Dates: start: 20170125, end: 20170125

REACTIONS (27)
  - Activities of daily living impaired [Unknown]
  - Haemorrhoids [Unknown]
  - Insomnia [Unknown]
  - Dry mouth [Unknown]
  - Fear [Unknown]
  - Decreased appetite [Unknown]
  - Pyrexia [Unknown]
  - Blood potassium decreased [Unknown]
  - Increased upper airway secretion [Unknown]
  - Dry eye [Unknown]
  - Nasal congestion [Unknown]
  - Nausea [Recovering/Resolving]
  - Eye infection staphylococcal [Unknown]
  - Anxiety [Unknown]
  - Diarrhoea [Not Recovered/Not Resolved]
  - Malaise [Unknown]
  - Depressed mood [Unknown]
  - Rectal haemorrhage [Not Recovered/Not Resolved]
  - Dehydration [Unknown]
  - Vomiting [Recovering/Resolving]
  - Abdominal pain [Unknown]
  - Fatigue [Unknown]
  - Weight decreased [Unknown]
  - Eyelid margin crusting [Unknown]
  - Constipation [Unknown]
  - Frequent bowel movements [Not Recovered/Not Resolved]
  - Genital abscess [Unknown]

NARRATIVE: CASE EVENT DATE: 2017
